FAERS Safety Report 10898524 (Version 1)
Quarter: 2015Q1

REPORT INFORMATION
  Report Type: Report from Study
  Country: US (occurrence: US)
  Receive Date: 20150309
  Receipt Date: 20150309
  Transmission Date: 20150721
  Serious: No
  Sender: FDA-Public Use
  Company Number: US-ABBVIE-14P-163-1304038-00

PATIENT
  Age: 26 Year
  Sex: Female
  Weight: 56.75 kg

DRUGS (2)
  1. NORETHINDRONE. [Concomitant]
     Active Substance: NORETHINDRONE
     Indication: PROGESTIN REPLACEMENT THERAPY
     Dates: start: 20141006
  2. LUPRON DEPOT [Suspect]
     Active Substance: LEUPROLIDE ACETATE
     Indication: ENDOMETRIOSIS
     Route: 030
     Dates: start: 201409

REACTIONS (4)
  - Mood swings [Not Recovered/Not Resolved]
  - Vaginal haemorrhage [Not Recovered/Not Resolved]
  - Depression [Not Recovered/Not Resolved]
  - Depressed mood [Recovering/Resolving]

NARRATIVE: CASE EVENT DATE: 201409
